FAERS Safety Report 8165666-1 (Version None)
Quarter: 2012Q1

REPORT INFORMATION
  Report Type: 
  Country: None (occurrence: None)
  Receive Date: 20120227
  Receipt Date: 20120215
  Transmission Date: 20120608
  Serious: Yes (Other)
  Sender: FDA-Public Use
  Company Number: US-BRISTOL-MYERS SQUIBB COMPANY-16394959

PATIENT
  Age: 56 Year
  Sex: Male
  Weight: 92 kg

DRUGS (4)
  1. CETUXIMAB [Suspect]
     Indication: NON-SMALL CELL LUNG CANCER
     Dosage: 250MG/M2 ON D1,8,22,29,36;400MG/M2 120 MINS D1 CYC1 LAST DOSE:522MG,20AUG10 11JUN2010-ONG 2800MG
     Route: 042
     Dates: start: 20100507
  2. DEXAMETHASONE [Suspect]
  3. CARBOPLATIN [Suspect]
     Indication: NON-SMALL CELL LUNG CANCER
     Dosage: 1DF: 6AUC ON DAY 1,22; LAST DOSE:618MG,30JUL2010 07MAY10-4JUN10(29DAYS) 11JUN2010-ONG 1910MG
     Route: 042
     Dates: start: 20100507
  4. PACLITAXEL [Suspect]
     Indication: NON-SMALL CELL LUNG CANCER
     Dosage: ON DAY 1,22 LAST DOSE:200MG,30JUL2010 7MAY20110-4JUN2010(29DAYS) 11JUN10-ONG 800MG/M2
     Route: 042
     Dates: start: 20100507

REACTIONS (5)
  - NEUTROPHIL COUNT DECREASED [None]
  - ARTHRALGIA [None]
  - PAIN [None]
  - GLUCOSE TOLERANCE IMPAIRED [None]
  - HYPERGLYCAEMIA [None]
